FAERS Safety Report 25217275 (Version 2)
Quarter: 2025Q2

REPORT INFORMATION
  Report Type: Report from Study
  Country: GB (occurrence: GB)
  Receive Date: 20250420
  Receipt Date: 20250423
  Transmission Date: 20250717
  Serious: No
  Sender: NOVARTIS
  Company Number: GB-002147023-NVSC2025GB064171

PATIENT
  Sex: Male

DRUGS (2)
  1. COSENTYX [Suspect]
     Active Substance: SECUKINUMAB
     Indication: Psoriatic arthropathy
     Dosage: 150 MG, QMO (2 PREFILLED DISPOSABLE INJECTION)
     Route: 058
     Dates: start: 20241115
  2. COSENTYX [Suspect]
     Active Substance: SECUKINUMAB
     Route: 065

REACTIONS (3)
  - Wrong dose [Unknown]
  - Muscle spasms [Unknown]
  - Headache [Recovered/Resolved]
